FAERS Safety Report 9648694 (Version 1)
Quarter: 2013Q4

REPORT INFORMATION
  Report Type: Spontaneous
  Country: US (occurrence: US)
  Receive Date: 20131028
  Receipt Date: 20131028
  Transmission Date: 20140711
  Serious: No
  Sender: FDA-Public Use
  Company Number: US-MYLANLABS-2013S1004613

PATIENT
  Age: 22 Year
  Sex: Female

DRUGS (2)
  1. RISPERIDONE TABLETS USP [Suspect]
     Indication: PSYCHOMOTOR HYPERACTIVITY
     Dates: end: 201208
  2. RISPERIDONE TABLETS USP [Suspect]
     Indication: OFF LABEL USE
     Dates: end: 201208

REACTIONS (1)
  - Restlessness [Not Recovered/Not Resolved]
